FAERS Safety Report 5199584-8 (Version None)
Quarter: 2007Q1

REPORT INFORMATION
  Report Type: 
  Country: None (occurrence: None)
  Receive Date: 20070102
  Receipt Date: 20070102
  Transmission Date: 20070707
  Serious: Yes (Other)
  Sender: FDA-Public Use
  Company Number: None

PATIENT
  Age: 4 Year
  Sex: Female
  Weight: 11.3 kg

DRUGS (18)
  1. ADAGEN [Suspect]
     Indication: ADENOSINE DEAMINASE DEFICIENCY
     Dosage: 1.2 ML (300 IU) 3 TIMES A WEEK
     Dates: start: 20030428
  2. ADAGEN [Suspect]
  3. ADAGEN [Suspect]
  4. ADAGEN [Suspect]
  5. ADAGEN [Suspect]
  6. ADAGEN [Suspect]
  7. ADAGEN [Suspect]
  8. ADAGEN [Suspect]
  9. ADAGEN [Suspect]
  10. ADAGEN [Suspect]
  11. ADAGEN [Suspect]
  12. ZYRTEC [Concomitant]
  13. MOMETASONE CREAM [Concomitant]
  14. ZANTAC [Concomitant]
  15. KETOCONAZOLE SHAMPOO [Concomitant]
  16. GRISEOFULVIN [Concomitant]
  17. BACTROBAN [Concomitant]
  18. AMOXICILLIN [Concomitant]

REACTIONS (1)
  - DRUG EFFECT DECREASED [None]
